FAERS Safety Report 7554755-8 (Version None)
Quarter: 2011Q2

REPORT INFORMATION
  Report Type: 
  Country: None (occurrence: None)
  Receive Date: 20110610
  Receipt Date: 20110525
  Transmission Date: 20111010
  Serious: Yes (Other)
  Sender: FDA-Public Use
  Company Number: 935730

PATIENT
  Age: 56 Year
  Sex: Female

DRUGS (1)
  1. DEFEROXAMINE MESYLATE [Suspect]
     Indication: PRODUCT USED FOR UNKNOWN INDICATION
     Dosage: SUBCUTANEOUS
     Route: 058
     Dates: start: 20100601

REACTIONS (4)
  - BLINDNESS [None]
  - MACULAR OEDEMA [None]
  - RETINOPATHY [None]
  - RETINAL PIGMENTATION [None]
